FAERS Safety Report 4460839-3 (Version None)
Quarter: 2004Q3

REPORT INFORMATION
  Report Type: 
  Country: None (occurrence: None)
  Receive Date: 20040923
  Receipt Date: 20040910
  Transmission Date: 20050211
  Serious: Yes (Disabling)
  Sender: FDA-Public Use
  Company Number: 200408192

PATIENT
  Age: 56 Year
  Sex: Female

DRUGS (1)
  1. BOTOX [Suspect]
     Indication: FACIAL SPASM
     Dates: start: 19960101, end: 20020101

REACTIONS (20)
  - ANXIETY [None]
  - ASTHENIA [None]
  - BURNING SENSATION [None]
  - DIFFICULTY IN WALKING [None]
  - DROOLING [None]
  - DYSARTHRIA [None]
  - EYE INFLAMMATION [None]
  - EYELID PTOSIS [None]
  - FACIAL PALSY [None]
  - HYPOAESTHESIA [None]
  - IMPAIRED WORK ABILITY [None]
  - MOBILITY DECREASED [None]
  - MUSCLE TWITCHING [None]
  - MUSCULAR WEAKNESS [None]
  - NEUROLOGICAL SYMPTOM [None]
  - NEUROPATHY PERIPHERAL [None]
  - PAIN IN EXTREMITY [None]
  - PARAESTHESIA [None]
  - PHOTOPHOBIA [None]
  - SENSORY LOSS [None]
